FAERS Safety Report 9458316 (Version 1)
Quarter: 2013Q3

REPORT INFORMATION
  Report Type: Spontaneous
  Country: US (occurrence: US)
  Receive Date: 20130814
  Receipt Date: 20130814
  Transmission Date: 20140515
  Serious: Yes (Hospitalization)
  Sender: FDA-Public Use
  Company Number: US-ELI_LILLY_AND_COMPANY-US201308001470

PATIENT
  Sex: Male

DRUGS (2)
  1. HUMULIN NPH [Suspect]
  2. NOVOLOG [Concomitant]

REACTIONS (1)
  - Blood glucose increased [Unknown]
